FAERS Safety Report 6366251-4 (Version None)
Quarter: 2009Q3

REPORT INFORMATION
  Report Type: 
  Country: None (occurrence: None)
  Receive Date: 20090915
  Receipt Date: 20090831
  Transmission Date: 20100115
  Serious: Yes (Disabling, Other)
  Sender: FDA-Public Use
  Company Number: AUR-APL-2009-00544

PATIENT
  Age: 66 Year
  Sex: Female

DRUGS (1)
  1. CEFAZOLIN [Suspect]
     Dosage: 500MG, ONCE, INTRATHECAL 1 X 1 DOSE
     Route: 037

REACTIONS (4)
  - COGNITIVE DISORDER [None]
  - DYSARTHRIA [None]
  - DYSPHAGIA [None]
  - STATUS EPILEPTICUS [None]
